FAERS Safety Report 22311466 (Version 1)
Quarter: 2023Q2

REPORT INFORMATION
  Report Type: Spontaneous
  Country: US (occurrence: US)
  Receive Date: 20230511
  Receipt Date: 20230511
  Transmission Date: 20230722
  Serious: No
  Sender: FDA-Public Use
  Company Number: US-BAUSCH-BL-2023-006954

PATIENT
  Sex: Male

DRUGS (3)
  1. FLUOROURACIL [Suspect]
     Active Substance: FLUOROURACIL
     Indication: Product used for unknown indication
     Dosage: EVERY WEEK FOR FIRST 4 WEEKS OF 6-WEEK CYCLE
     Route: 065
  2. OXALIPLATIN [Suspect]
     Active Substance: OXALIPLATIN
     Indication: Product used for unknown indication
     Dosage: EVERY 2 WEEKS FOR FIRST 4 WEEKS OF 6-WEEK CYCLE
     Route: 065
  3. LEUCOVORIN [Suspect]
     Active Substance: LEUCOVORIN
     Indication: Product used for unknown indication
     Dosage: EVERY WEEK FOR FIRST 4 WEEKS OF 6-WEEK CYCLE
     Route: 065

REACTIONS (2)
  - Adverse drug reaction [Unknown]
  - Drug intolerance [Unknown]
